FAERS Safety Report 8868870 (Version 1)
Quarter: 2012Q4

REPORT INFORMATION
  Report Type: 
  Country: US (occurrence: US)
  Receive Date: 20121026
  Receipt Date: 20121026
  Transmission Date: 20130627
  Serious: No
  Sender: FDA-Public Use
  Company Number: US-AMGEN-USASP2012047902

PATIENT
  Age: 31 Year
  Sex: Female
  Weight: 90.7 kg

DRUGS (6)
  1. ENBREL [Suspect]
     Indication: PRODUCT USED FOR UNKNOWN INDICATION
     Dosage: 50 mg, qwk
     Route: 058
  2. MELOXICAM [Concomitant]
     Dosage: 15 mg, UNK
  3. HYDROCHLOROTH [Concomitant]
     Dosage: 12.5 mg, UNK
  4. LEVOTHYROXIN [Concomitant]
     Dosage: 125 mug, UNK
  5. LEXAPRO [Concomitant]
     Dosage: 10 mg, UNK
  6. DEXILANT [Concomitant]
     Dosage: 30 mg, UNK

REACTIONS (5)
  - Chest discomfort [Unknown]
  - Injection site swelling [Unknown]
  - Injection site erythema [Unknown]
  - Injection site pruritus [Unknown]
  - Injection site reaction [Unknown]
